FAERS Safety Report 9150029 (Version 1)
Quarter: 2013Q1

REPORT INFORMATION
  Report Type: Spontaneous
  Country: US (occurrence: US)
  Receive Date: 20130308
  Receipt Date: 20130308
  Transmission Date: 20140127
  Serious: Yes (Other)
  Sender: FDA-Public Use
  Company Number: US-BAYER-2013-027693

PATIENT
  Age: 18 Year
  Sex: Female
  Weight: 77.1 kg

DRUGS (8)
  1. OCELLA [Suspect]
  2. YASMIN [Suspect]
  3. ZONEGRAN [Concomitant]
  4. OMNICEF [Concomitant]
  5. NASACORT [Concomitant]
  6. DECONEX [Concomitant]
  7. DEMEROL [Concomitant]
     Indication: HEADACHE
  8. YAZ [Suspect]

REACTIONS (1)
  - Pulmonary embolism [None]
